FAERS Safety Report 10560061 (Version 1)
Quarter: 2014Q4

REPORT INFORMATION
  Report Type: Spontaneous
  Country: US (occurrence: None)
  Receive Date: 20141031
  Receipt Date: 20141031
  Transmission Date: 20150529
  Serious: Yes (Hospitalization)
  Sender: FDA-Public Use
  Company Number: None

PATIENT
  Age: 3 Year
  Sex: Male
  Weight: 16.2 kg

DRUGS (1)
  1. DEXAMETHASONE. [Suspect]
     Active Substance: DEXAMETHASONE

REACTIONS (15)
  - Hypertension [None]
  - Drooling [None]
  - Fluid retention [None]
  - General physical health deterioration [None]
  - Haemorrhage intracranial [None]
  - Seizure [None]
  - Hyperglycaemia [None]
  - Left ventricular hypertrophy [None]
  - Weight increased [None]
  - Hypoxia [None]
  - Pulmonary haemorrhage [None]
  - Posterior reversible encephalopathy syndrome [None]
  - Bradycardia [None]
  - Respiratory moniliasis [None]
  - Acute kidney injury [None]

NARRATIVE: CASE EVENT DATE: 20140831
